FAERS Safety Report 5770621-2 (Version None)
Quarter: 2008Q2

REPORT INFORMATION
  Report Type: 
  Country: None (occurrence: None)
  Receive Date: 20080613
  Receipt Date: 20080507
  Transmission Date: 20081010
  Serious: No
  Sender: FDA-Public Use
  Company Number: US-ABBOTT-08P-163-0450859-00

PATIENT
  Sex: Female
  Weight: 62.652 kg

DRUGS (8)
  1. HUMIRA [Suspect]
     Indication: PSORIATIC ARTHROPATHY
     Route: 058
     Dates: start: 20080301, end: 20080423
  2. HUMIRA [Suspect]
     Route: 058
     Dates: start: 20080423
  3. ISONIAZID [Concomitant]
     Indication: TUBERCULOSIS TEST POSITIVE
     Route: 048
     Dates: start: 20080501
  4. ANTIHYPERTENSIVES [Concomitant]
     Indication: HYPERTENSION
  5. MEDICATION FOR COPD [Concomitant]
     Indication: CHRONIC OBSTRUCTIVE PULMONARY DISEASE
  6. MEDICATION FOR FIBROMYALGIA [Concomitant]
     Indication: FIBROMYALGIA
  7. MEDICATION FOR CHOLESTEROL [Concomitant]
     Indication: BLOOD CHOLESTEROL
  8. UNSPECIFIED MEDICATIONS [Concomitant]
     Indication: DRUG USE FOR UNKNOWN INDICATION

REACTIONS (7)
  - INJECTION SITE ERYTHEMA [None]
  - INJECTION SITE IRRITATION [None]
  - INJECTION SITE PAPULE [None]
  - INJECTION SITE SWELLING [None]
  - PAIN [None]
  - RASH PAPULAR [None]
  - WHEEZING [None]
